FAERS Safety Report 19286796 (Version 1)
Quarter: 2021Q2

REPORT INFORMATION
  Report Type: Report from Study
  Country: None (occurrence: US)
  Receive Date: 20210522
  Receipt Date: 20210522
  Transmission Date: 20210717
  Serious: Yes (Other)
  Sender: FDA-Public Use
  Company Number: US-ABBVIE-21K-163-3915609-00

PATIENT
  Age: 9 Year
  Sex: Male

DRUGS (2)
  1. HUMIRA [Suspect]
     Active Substance: ADALIMUMAB
     Indication: IRIDOCYCLITIS
     Dosage: DAY 1
     Route: 058
     Dates: start: 20210514, end: 20210514
  2. HUMIRA [Suspect]
     Active Substance: ADALIMUMAB
     Indication: UVEITIS

REACTIONS (3)
  - Blindness unilateral [Unknown]
  - Body temperature abnormal [Unknown]
  - Erythema [Unknown]

NARRATIVE: CASE EVENT DATE: 202105
